FAERS Safety Report 6084186-1 (Version None)
Quarter: 2009Q1

REPORT INFORMATION
  Report Type: 
  Country: None (occurrence: None)
  Receive Date: 20090219
  Receipt Date: 20090211
  Transmission Date: 20090719
  Serious: Yes (Other)
  Sender: FDA-Public Use
  Company Number: US-JNJFOC-20080405422

PATIENT
  Sex: Female
  Weight: 61.24 kg

DRUGS (12)
  1. DURAGESIC-100 [Suspect]
     Route: 062
  2. DURAGESIC-100 [Suspect]
     Route: 062
  3. DURAGESIC-100 [Suspect]
     Route: 062
  4. DURAGESIC-100 [Suspect]
     Indication: PAIN
     Route: 062
  5. FENTANYL TRANSDERMAL SYSTEM [Suspect]
     Indication: PAIN
     Route: 062
  6. FENTANYL TRANSDERMAL SYSTEM [Suspect]
     Route: 062
  7. FENTANYL TRANSDERMAL SYSTEM [Concomitant]
     Route: 062
  8. TOPAMAX [Concomitant]
     Indication: NEURALGIA
     Route: 048
  9. CYMBALTA [Concomitant]
     Indication: NEUROPATHY PERIPHERAL
     Route: 048
  10. CELEBREX [Concomitant]
     Indication: ARTHRITIS
     Route: 048
  11. MULTI-VITAMIN [Concomitant]
     Indication: MEDICAL DIET
  12. FENTANYL TRANSDERMAL SYSTEM [Concomitant]
     Route: 062

REACTIONS (13)
  - ASTHMA [None]
  - DERMATITIS CONTACT [None]
  - DISCOMFORT [None]
  - FIBROMYALGIA [None]
  - HYPERSOMNIA [None]
  - INFLUENZA LIKE ILLNESS [None]
  - LETHARGY [None]
  - MALAISE [None]
  - NEUROPATHY PERIPHERAL [None]
  - PRODUCT QUALITY ISSUE [None]
  - SKIN REACTION [None]
  - WEIGHT DECREASED [None]
  - WITHDRAWAL SYNDROME [None]
